FAERS Safety Report 10656957 (Version 2)
Quarter: 2015Q1

REPORT INFORMATION
  Report Type: Spontaneous
  Country: US (occurrence: None)
  Receive Date: 20141215
  Receipt Date: 20150204
  Transmission Date: 20150720
  Serious: Yes (Other)
  Sender: FDA-Public Use
  Company Number: AT3110

PATIENT
  Age: 61 Year
  Sex: Female
  Weight: 68.04 kg

DRUGS (2)
  1. RICOLA NATURAL HERB COUGH DROPS (4.9 MG. MENTHOL) [Suspect]
     Active Substance: HERBALS\MENTHOL
     Indication: OROPHARYNGEAL PAIN
     Route: 048
  2. RICOLA NATURAL HERB COUGH DROPS (4.9 MG. MENTHOL) [Suspect]
     Active Substance: HERBALS\MENTHOL
     Indication: COUGH
     Route: 048

REACTIONS (3)
  - Pharyngeal erythema [None]
  - Product quality issue [None]
  - Throat irritation [None]

NARRATIVE: CASE EVENT DATE: 20141130
